FAERS Safety Report 11536937 (Version 2)
Quarter: 2015Q4

REPORT INFORMATION
  Report Type: Spontaneous
  Country: FR (occurrence: FR)
  Receive Date: 20150922
  Receipt Date: 20151006
  Transmission Date: 20160304
  Serious: Yes (Hospitalization, Other)
  Sender: FDA-Public Use
  Company Number: FR-PFIZER INC-2015309591

PATIENT
  Age: 21 Year
  Sex: Female

DRUGS (3)
  1. LYSANXIA [Suspect]
     Active Substance: PRAZEPAM
     Dosage: 10 MG TABLET, 20 DFS
     Route: 048
     Dates: start: 20150829
  2. EFFEXOR [Suspect]
     Active Substance: VENLAFAXINE HYDROCHLORIDE
     Dosage: 37.5 MG TABLET, 20 DOSAGE FORMS
     Route: 048
     Dates: start: 20150829
  3. PRONTALGINE [Suspect]
     Active Substance: ACETAMINOPHEN\AMOBARBITAL\CAFFEINE\CODEINE PHOSPHATE
     Dosage: 10 DF, SINGLE
     Route: 048
     Dates: start: 20150829

REACTIONS (5)
  - Crying [Recovered/Resolved]
  - Tachycardia [Recovered/Resolved]
  - Suicidal ideation [Unknown]
  - Somnolence [Recovered/Resolved]
  - Intentional overdose [Recovered/Resolved]

NARRATIVE: CASE EVENT DATE: 20150829
